FAERS Safety Report 11281787 (Version 1)
Quarter: 2015Q3

REPORT INFORMATION
  Report Type: Spontaneous
  Country: JP (occurrence: JP)
  Receive Date: 20150717
  Receipt Date: 20150717
  Transmission Date: 20151125
  Serious: Yes (Other)
  Sender: FDA-Public Use
  Company Number: JP-BAUSCH-SP09696

PATIENT
  Age: 77 Year
  Sex: Female

DRUGS (3)
  1. PRAMIEL [Concomitant]
     Indication: ENDOSCOPY LARGE BOWEL
     Route: 048
     Dates: start: 20150616
  2. FORSENID [Concomitant]
     Indication: ENDOSCOPY LARGE BOWEL
     Route: 048
     Dates: start: 20150615
  3. MOVIPREP [Suspect]
     Active Substance: ASCORBIC ACID\POLYETHYLENE GLYCOL 3350\POTASSIUM CHLORIDE\SODIUM ASCORBATE\SODIUM CHLORIDE\SODIUM SULFATE
     Indication: ENDOSCOPY LARGE BOWEL
     Route: 048
     Dates: start: 20150616

REACTIONS (6)
  - Coma scale abnormal [Recovered/Resolved]
  - Syncope [Unknown]
  - Dyspnoea [Unknown]
  - Faecal incontinence [Unknown]
  - Feeling abnormal [Recovered/Resolved]
  - Tremor [Unknown]

NARRATIVE: CASE EVENT DATE: 20150616
